FAERS Safety Report 26081690 (Version 1)
Quarter: 2025Q4

REPORT INFORMATION
  Report Type: Spontaneous
  Country: CA (occurrence: CA)
  Receive Date: 20251124
  Receipt Date: 20251124
  Transmission Date: 20260117
  Serious: Yes (Other)
  Sender: ROCHE
  Company Number: CA-002147023-NVSC2025CA177866

PATIENT
  Age: 18 Year
  Sex: Female

DRUGS (1)
  1. XOLAIR [Suspect]
     Active Substance: OMALIZUMAB
     Indication: Chronic spontaneous urticaria
     Dosage: 300 MG (1 EVERY 4 WEEKS) (SOLUTION SUBCUTANEOUS)
     Route: 058

REACTIONS (2)
  - Pharyngeal swelling [Not Recovered/Not Resolved]
  - Sensation of foreign body [Not Recovered/Not Resolved]
